FAERS Safety Report 8786946 (Version 2)
Quarter: 2013Q4

REPORT INFORMATION
  Report Type: Report from Study
  Country: US (occurrence: US)
  Receive Date: 20120914
  Receipt Date: 20131031
  Transmission Date: 20140711
  Serious: No
  Sender: FDA-Public Use
  Company Number: US-009507513-2012SP033882

PATIENT
  Sex: Female

DRUGS (1)
  1. ETONOGESTREL IMPLANT- IMPLANON NEXT [Suspect]
     Dates: start: 20120112

REACTIONS (2)
  - Device difficult to use [Unknown]
  - No adverse event [Unknown]
